FAERS Safety Report 8508754-X (Version None)
Quarter: 2012Q3

REPORT INFORMATION
  Report Type: 
  Country: None (occurrence: None)
  Receive Date: 20120713
  Receipt Date: 20120703
  Transmission Date: 20120928
  Serious: Yes (Other)
  Sender: FDA-Public Use
  Company Number: US-JNJFOC-20120401794

PATIENT
  Sex: Male

DRUGS (14)
  1. ALPRAZOLAM [Concomitant]
     Route: 048
     Dates: start: 20111223
  2. KADIAN [Concomitant]
     Route: 048
     Dates: start: 20120309
  3. SODIUM CHLORIDE [Concomitant]
     Route: 065
     Dates: start: 20090113
  4. REMICADE [Suspect]
     Indication: RHEUMATOID ARTHRITIS
     Route: 042
     Dates: start: 20111223
  5. REMICADE [Suspect]
     Route: 042
     Dates: start: 20120309, end: 20120316
  6. SAVELLA [Concomitant]
     Route: 048
     Dates: start: 20111206
  7. ZOLPIDEM [Concomitant]
     Route: 048
     Dates: start: 20111206
  8. HYDROXYCHLOROQUINE SULFATE [Concomitant]
     Route: 048
     Dates: start: 20111206
  9. VALACYCLOVIR HYDROCHLORIDE [Concomitant]
     Route: 048
     Dates: start: 20111206
  10. METAXALONE [Concomitant]
     Route: 048
     Dates: start: 20111206
  11. CLONAZEPAM [Concomitant]
     Route: 048
     Dates: start: 20111223
  12. DEPLIN [Concomitant]
     Route: 048
     Dates: start: 20111206
  13. REMICADE [Suspect]
     Route: 042
     Dates: start: 20090106
  14. HYDROCODONE BITARTRATE AND ACETAMINOPHEN [Concomitant]
     Dosage: 10 MG-325 MG
     Route: 048
     Dates: start: 20111206

REACTIONS (1)
  - PNEUMONIA [None]
